FAERS Safety Report 7639050 (Version 8)
Quarter: 2017Q2

REPORT INFORMATION
  Report Type: Spontaneous
  Country: BG (occurrence: BG)
  Receive Date: 20101025
  Receipt Date: 20170602
  Transmission Date: 20170830
  Serious: Yes (Life-Threatening, Hospitalization, Other)
  Sender: FDA-Public Use
  Company Number: PHHY2010BG70159

PATIENT
  Age: 57 Year
  Sex: Male

DRUGS (8)
  1. INVEGA [Concomitant]
     Active Substance: PALIPERIDONE
     Indication: SCHIZOPHRENIA
     Dosage: UNK MG, UNK
     Route: 065
  2. OMNIC [Concomitant]
     Active Substance: TAMSULOSIN HYDROCHLORIDE
     Indication: PRODUCT USED FOR UNKNOWN INDICATION
     Dosage: 1 DF, QD
     Route: 065
  3. ZOPICLONE [Concomitant]
     Active Substance: ZOPICLONE
     Indication: PRODUCT USED FOR UNKNOWN INDICATION
     Dosage: UNK
     Route: 065
  4. XYZAL [Concomitant]
     Active Substance: LEVOCETIRIZINE DIHYDROCHLORIDE
     Indication: PRODUCT USED FOR UNKNOWN INDICATION
     Dosage: UNK
     Route: 065
  5. DEGAN [Concomitant]
     Active Substance: METOCLOPRAMIDE HYDROCHLORIDE
     Indication: PRODUCT USED FOR UNKNOWN INDICATION
     Dosage: 1 DF, UNK
     Route: 042
  6. PANCEF//CEFIXIME [Concomitant]
     Indication: PRODUCT USED FOR UNKNOWN INDICATION
     Dosage: 500 OT, QD
     Route: 065
  7. LESCOL XL [Suspect]
     Active Substance: FLUVASTATIN SODIUM
     Indication: DYSLIPIDAEMIA
     Dosage: 80 MG, QD
     Route: 048
     Dates: end: 201010
  8. ASPIRIN. [Concomitant]
     Active Substance: ASPIRIN
     Indication: PRODUCT USED FOR UNKNOWN INDICATION
     Dosage: 1 DF, QD
     Route: 065

REACTIONS (80)
  - Blood creatine phosphokinase increased [Recovering/Resolving]
  - Alanine aminotransferase increased [Recovering/Resolving]
  - Faeces discoloured [Recovered/Resolved]
  - Hypoaesthesia [Recovered/Resolved]
  - White blood cell disorder [Unknown]
  - Blood urea increased [Unknown]
  - Blood potassium decreased [Unknown]
  - Fatigue [Unknown]
  - Somnolence [Unknown]
  - Coma [Recovering/Resolving]
  - Dementia [Recovering/Resolving]
  - Epidermolysis [Unknown]
  - Rhabdomyolysis [Unknown]
  - Oesophageal disorder [Recovered/Resolved]
  - Dry mouth [Recovered/Resolved]
  - Thirst [Recovered/Resolved]
  - Gamma-glutamyltransferase increased [Recovering/Resolving]
  - General physical health deterioration [Unknown]
  - Lymphocyte count [Unknown]
  - Red blood cell sedimentation rate increased [Unknown]
  - International normalised ratio increased [Unknown]
  - Amylase increased [Unknown]
  - Chromaturia [Unknown]
  - Hypersensitivity [Recovering/Resolving]
  - Brain oedema [Recovering/Resolving]
  - Decubitus ulcer [Recovered/Resolved]
  - Rhabdomyolysis [Recovered/Resolved]
  - Syncope [Unknown]
  - Epistaxis [Unknown]
  - Dysarthria [Unknown]
  - Haematocrit decreased [Unknown]
  - Red blood cell count decreased [Unknown]
  - Polyuria [Unknown]
  - Urinary incontinence [Unknown]
  - Osteochondrosis [Unknown]
  - Encephalopathy [Unknown]
  - Blood fibrinogen decreased [Unknown]
  - Fibrin D dimer increased [Unknown]
  - Blood sodium decreased [Unknown]
  - Hypoaesthesia [Unknown]
  - Muscle injury [Unknown]
  - Aspartate aminotransferase increased [Recovering/Resolving]
  - Anxiety [Recovering/Resolving]
  - Hypertension [Recovering/Resolving]
  - Tongue biting [Unknown]
  - Blood iron decreased [Unknown]
  - Blood cholinesterase increased [Unknown]
  - High density lipoprotein decreased [Unknown]
  - Cervical radiculopathy [Recovering/Resolving]
  - Deep vein thrombosis [Unknown]
  - Paraesthesia [Recovering/Resolving]
  - Pallor [Unknown]
  - Blood albumin decreased [Unknown]
  - Blood triglycerides increased [Unknown]
  - Blood uric acid increased [Unknown]
  - Blood alkaline phosphatase increased [Unknown]
  - Ammonia increased [Unknown]
  - Oedema peripheral [Unknown]
  - Blood creatine phosphokinase MB [Unknown]
  - Spinal osteoarthritis [Recovering/Resolving]
  - Abnormal behaviour [Unknown]
  - Haemoglobin decreased [Unknown]
  - Protein total decreased [Unknown]
  - Lactate dehydrogenase urine increased [Unknown]
  - Blood calcium decreased [Unknown]
  - Muscle spasms [Unknown]
  - Psychomotor hyperactivity [Unknown]
  - Vomiting [Unknown]
  - Insomnia [Unknown]
  - Muscular weakness [Unknown]
  - Rhabdomyolysis [Recovered/Resolved]
  - Muscular weakness [Recovering/Resolving]
  - Myoglobin blood increased [Recovering/Resolving]
  - Chromaturia [Recovered/Resolved]
  - Haematemesis [Recovered/Resolved]
  - Dyslipidaemia [Recovering/Resolving]
  - Pain [Unknown]
  - Gamma-glutamyltransferase [Unknown]
  - Nystagmus [Unknown]
  - Nausea [Unknown]

NARRATIVE: CASE EVENT DATE: 2010
